FAERS Safety Report 12363767 (Version 1)
Quarter: 2016Q2

REPORT INFORMATION
  Report Type: Spontaneous
  Country: US (occurrence: None)
  Receive Date: 20160512
  Receipt Date: 20160512
  Transmission Date: 20160815
  Serious: No
  Sender: FDA-Public Use
  Company Number: None

PATIENT
  Age: 60 Year
  Sex: Male

DRUGS (1)
  1. SUPARTZ FX PFS 25MG/2.5ML BIOVENTUS [Suspect]
     Active Substance: HYALURONATE SODIUM
     Indication: OSTEOARTHRITIS
     Dosage: 25MG/2.5ML
     Route: 014
     Dates: start: 20160410

REACTIONS (5)
  - Product quality issue [None]
  - Arthralgia [None]
  - Joint swelling [None]
  - No reaction on previous exposure to drug [None]
  - Synovial disorder [None]

NARRATIVE: CASE EVENT DATE: 20160410
